FAERS Safety Report 5230467-0 (Version None)
Quarter: 2007Q1

REPORT INFORMATION
  Report Type: 
  Country: None (occurrence: None)
  Receive Date: 20070206
  Receipt Date: 20070125
  Transmission Date: 20070707
  Serious: Yes (Other)
  Sender: FDA-Public Use
  Company Number: FR-ELI_LILLY_AND_COMPANY-FR200701005262

PATIENT
  Age: 33 Year
  Sex: Female

DRUGS (2)
  1. FORTEO [Suspect]
     Indication: OSTEOPOROSIS
     Dosage: 20 UCI, DAILY (1/D)
     Route: 058
     Dates: start: 20060701
  2. DEPAKENE [Concomitant]

REACTIONS (1)
  - ABDOMINAL PAIN UPPER [None]
